FAERS Safety Report 6925555-4 (Version None)
Quarter: 2010Q3

REPORT INFORMATION
  Report Type: 
  Country: None (occurrence: None)
  Receive Date: 20100810
  Receipt Date: 20100730
  Transmission Date: 20110219
  Serious: Yes (Hospitalization)
  Sender: FDA-Public Use
  Company Number: 2010SP040805

PATIENT
  Age: 54 Year
  Sex: Male

DRUGS (7)
  1. TEMOZOLOMIDE [Suspect]
     Indication: PRODUCT USED FOR UNKNOWN INDICATION
     Dosage: 17 MG/M2
     Dates: start: 20100420, end: 20100706
  2. IRINOTECAN HCL [Suspect]
     Indication: PRODUCT USED FOR UNKNOWN INDICATION
     Dosage: 100 MG/M2
  3. LEVETIRACETAM [Concomitant]
  4. EMCONCOR [Concomitant]
  5. NORVASC [Concomitant]
  6. SUTRIL [Concomitant]
  7. OMEPRAZOLE [Concomitant]

REACTIONS (7)
  - BRAIN OEDEMA [None]
  - FACE INJURY [None]
  - FALL [None]
  - GLIOBLASTOMA [None]
  - HAEMATOMA [None]
  - MALIGNANT NEOPLASM PROGRESSION [None]
  - NEUROLOGICAL DECOMPENSATION [None]
